FAERS Safety Report 12866893 (Version 1)
Quarter: 2016Q4

REPORT INFORMATION
  Report Type: Spontaneous
  Country: JP (occurrence: JP)
  Receive Date: 20161020
  Receipt Date: 20161020
  Transmission Date: 20170207
  Serious: Yes (Death, Hospitalization, Other)
  Sender: FDA-Public Use
  Company Number: JP-SPECTRUM PHARMACEUTICALS, INC.-16-Z-JP-00313

PATIENT
  Age: 58 Year
  Sex: Male

DRUGS (2)
  1. ZEVALIN [Suspect]
     Active Substance: IBRITUMOMAB TIUXETAN
     Dosage: UNK, SINGLE
     Route: 042
     Dates: start: 20101117, end: 20101117
  2. ZEVALIN [Suspect]
     Active Substance: IBRITUMOMAB TIUXETAN
     Indication: B-CELL LYMPHOMA RECURRENT
     Dosage: UNK, SINGLE
     Route: 042
     Dates: start: 20101203, end: 20101203

REACTIONS (11)
  - Neutrophil count decreased [Recovered/Resolved]
  - Back pain [Recovered/Resolved]
  - Skin ulcer [Recovered/Resolved]
  - Myelodysplastic syndrome [Fatal]
  - Pain in extremity [Recovering/Resolving]
  - Bronchitis [Recovered/Resolved]
  - Febrile neutropenia [Recovered/Resolved]
  - Toothache [Recovered/Resolved]
  - White blood cell count decreased [Recovered/Resolved]
  - Platelet count decreased [Recovered/Resolved]
  - Anaemia [Recovered/Resolved]

NARRATIVE: CASE EVENT DATE: 2010
